FAERS Safety Report 10210495 (Version 1)
Quarter: 2014Q2

REPORT INFORMATION
  Report Type: Spontaneous
  Country: JP (occurrence: JP)
  Receive Date: 20140602
  Receipt Date: 20140602
  Transmission Date: 20141212
  Serious: Yes (Hospitalization, Other)
  Sender: FDA-Public Use
  Company Number: JP-ACTAVIS-2014-11179

PATIENT
  Age: 4 Month
  Sex: Female

DRUGS (1)
  1. IBUPROFEN (UNKNOWN) [Suspect]
     Indication: ECZEMA
     Dosage: UNKNOWN
     Route: 061

REACTIONS (3)
  - Dermatitis atopic [Recovering/Resolving]
  - Dermatitis contact [Recovering/Resolving]
  - Wrong drug administered [Recovering/Resolving]
